FAERS Safety Report 18312587 (Version 3)
Quarter: 2020Q4

REPORT INFORMATION
  Report Type: Report from Study
  Country: IT (occurrence: IT)
  Receive Date: 20200925
  Receipt Date: 20201116
  Transmission Date: 20210113
  Serious: Yes (Hospitalization)
  Sender: FDA-Public Use
  Company Number: IT-REGENERON PHARMACEUTICALS, INC.-2020-77653

PATIENT

DRUGS (7)
  1. SAR439459 [Suspect]
     Active Substance: SAR-439459
     Indication: MALIGNANT MELANOMA
     Dosage: 0.5 MG/KG, Q3W
     Route: 042
     Dates: start: 20200813, end: 20200813
  2. PARACETAMOL/CODEINE [Concomitant]
     Active Substance: ACETAMINOPHEN\CODEINE PHOSPHATE
     Indication: PRODUCT USED FOR UNKNOWN INDICATION
     Dosage: TOTAL DAILY DOSE: 1000 MG
     Route: 048
     Dates: start: 20200701, end: 20200918
  3. CEMIPLIMAB [Suspect]
     Active Substance: CEMIPLIMAB
     Indication: MALIGNANT MELANOMA
     Dosage: 3 MG/KG, Q3W
     Route: 042
  4. CEMIPLIMAB [Suspect]
     Active Substance: CEMIPLIMAB
     Dosage: 3 MG/KG, Q3W
     Route: 042
     Dates: start: 20200813, end: 20200813
  5. SAR439459 [Suspect]
     Active Substance: SAR-439459
     Dosage: 22.5 MG/KG, Q3W
     Route: 042
     Dates: start: 20200903, end: 20200903
  6. CHLORPHENAMINE [Concomitant]
     Active Substance: CHLORPHENIRAMINE MALEATE
     Indication: PRODUCT USED FOR UNKNOWN INDICATION
     Dosage: TOTAL DAILY DOSE: 10 MG
     Route: 042
     Dates: start: 20200903
  7. ENOXAPARIN SODIUM. [Concomitant]
     Active Substance: ENOXAPARIN SODIUM
     Indication: PROPHYLAXIS
     Dosage: TOTAL DAILY DOSE: 6000 U
     Route: 058
     Dates: start: 20200814, end: 20200918

REACTIONS (1)
  - Stomatitis [Not Recovered/Not Resolved]

NARRATIVE: CASE EVENT DATE: 20200904
